FAERS Safety Report 5896990-0 (Version None)
Quarter: 2008Q3

REPORT INFORMATION
  Report Type: 
  Country: None (occurrence: None)
  Receive Date: 20080924
  Receipt Date: 20080303
  Transmission Date: 20090109
  Serious: Yes (Other)
  Sender: FDA-Public Use
  Company Number: US-ASTRAZENECA-2008UW04436

PATIENT
  Age: 38 Year
  Sex: Female

DRUGS (7)
  1. SEROQUEL [Suspect]
     Route: 048
  2. ZOLOFT [Concomitant]
  3. LUNESTA [Concomitant]
  4. KLONOPIN [Concomitant]
  5. CYMBALTA [Concomitant]
  6. ADDERALL 10 [Concomitant]
  7. TOPAMAX [Concomitant]

REACTIONS (2)
  - NERVOUS SYSTEM DISORDER [None]
  - NEUROLEPTIC MALIGNANT SYNDROME [None]
